FAERS Safety Report 6160982-7 (Version None)
Quarter: 2009Q2

REPORT INFORMATION
  Report Type: 
  Country: None (occurrence: None)
  Receive Date: 20090420
  Receipt Date: 20090406
  Transmission Date: 20091009
  Serious: Yes (Death)
  Sender: FDA-Public Use
  Company Number: NL-GENENTECH-280549

PATIENT
  Sex: Male

DRUGS (3)
  1. BEVACIZUMAB [Suspect]
     Indication: COLORECTAL CANCER
     Dosage: 637 MG, Q3W
     Route: 042
     Dates: start: 20051130
  2. CAPECITABINE [Suspect]
     Indication: COLORECTAL CANCER
     Dosage: 5000 MG, DAYS 1+14
     Route: 048
     Dates: start: 20051130
  3. OXALIPLATIN [Suspect]
     Indication: COLORECTAL CANCER
     Dosage: UNK
     Route: 042
     Dates: start: 20051130, end: 20060315

REACTIONS (1)
  - SUDDEN DEATH [None]
